FAERS Safety Report 15617340 (Version 1)
Quarter: 2018Q4

REPORT INFORMATION
  Report Type: Spontaneous
  Country: US (occurrence: US)
  Receive Date: 20181114
  Receipt Date: 20181114
  Transmission Date: 20190205
  Serious: Yes (Other)
  Sender: FDA-Public Use
  Company Number: PHHY2018US150045

PATIENT
  Age: 60 Year
  Sex: Female

DRUGS (1)
  1. DIGOXIN. [Suspect]
     Active Substance: DIGOXIN
     Indication: AMYLOIDOSIS
     Route: 065

REACTIONS (6)
  - Cardiac failure [Unknown]
  - Ventricular fibrillation [Unknown]
  - Ventricular tachycardia [Unknown]
  - Sepsis [Unknown]
  - Cardiac arrest [Unknown]
  - Product use in unapproved indication [Unknown]
